FAERS Safety Report 9217013 (Version 2)
Quarter: 2013Q2

REPORT INFORMATION
  Report Type: Spontaneous
  Country: IT (occurrence: None)
  Receive Date: 20130404
  Receipt Date: 20130404
  Transmission Date: 20140414
  Serious: Yes (Life-Threatening)
  Sender: FDA-Public Use
  Company Number: VAL_02269_2013

PATIENT
  Sex: Female

DRUGS (3)
  1. METHERGINE [Suspect]
     Indication: UTERINE HAEMORRHAGE
     Dosage: PARENTERAL
     Route: 051
     Dates: start: 20120831, end: 20120831
  2. TRANEX (UNKNOWN) [Concomitant]
  3. PRIMOLUT NOR ( UNKNOWN) [Concomitant]

REACTIONS (4)
  - Cyanosis [None]
  - Peripheral coldness [None]
  - Dizziness [None]
  - Ill-defined disorder [None]
